FAERS Safety Report 7345311-5 (Version None)
Quarter: 2011Q1

REPORT INFORMATION
  Report Type: 
  Country: None (occurrence: None)
  Receive Date: 20110310
  Receipt Date: 20110307
  Transmission Date: 20110831
  Serious: Yes (Other)
  Sender: FDA-Public Use
  Company Number: US-ABBOTT-11P-163-0709657-00

PATIENT
  Sex: Female
  Weight: 83.99 kg

DRUGS (7)
  1. METHOTREXATE [Concomitant]
     Indication: PSORIATIC ARTHROPATHY
     Route: 058
  2. DYAZIDE [Concomitant]
     Indication: HYPERTENSION
     Dosage: 37.5/25 DAILY
     Route: 048
  3. TYLENOL PM [Concomitant]
     Indication: INSOMNIA
     Dosage: AS NEEDED
     Route: 048
  4. COZAAR [Concomitant]
     Indication: HYPERTENSION
     Route: 048
  5. FOLIC ACID [Concomitant]
     Indication: VITAMIN SUPPLEMENTATION
     Route: 048
  6. HUMIRA [Suspect]
     Indication: PSORIATIC ARTHROPATHY
     Route: 058
     Dates: start: 20100501, end: 20100901
  7. AMBIEN [Concomitant]
     Indication: INSOMNIA
     Dosage: 1/2 TAB AS NEEDED
     Route: 048

REACTIONS (4)
  - CARPAL TUNNEL SYNDROME [None]
  - TENDERNESS [None]
  - HYPOAESTHESIA [None]
  - OEDEMA PERIPHERAL [None]
